FAERS Safety Report 5321415-3 (Version None)
Quarter: 2007Q2

REPORT INFORMATION
  Report Type: 
  Country: None (occurrence: None)
  Receive Date: 20070504
  Receipt Date: 20070426
  Transmission Date: 20071010
  Serious: Yes (Death)
  Sender: FDA-Public Use
  Company Number: SUS1-2006-00451

PATIENT
  Age: 17 Year
  Sex: 0
  Weight: 81.6 kg

DRUGS (5)
  1. ADDERALL 5 [Suspect]
     Indication: ATTENTION DEFICIT/HYPERACTIVITY DISORDER
     Dosage: SEE IMAGE
     Dates: start: 20060322, end: 20060301
  2. ADDERALL 5 [Suspect]
     Indication: ATTENTION DEFICIT/HYPERACTIVITY DISORDER
     Dosage: SEE IMAGE
     Dates: start: 20060307, end: 20060321
  3. ADDERALL 5 [Suspect]
     Indication: ATTENTION DEFICIT/HYPERACTIVITY DISORDER
     Dosage: SEE IMAGE
     Dates: start: 20060301, end: 20060401
  4. LAMICTAL [Suspect]
     Indication: BIPOLAR DISORDER
     Dosage: 75 MG, 1X/DAY;QD
     Dates: start: 20040401
  5. SYNTHROID [Concomitant]

REACTIONS (7)
  - ARRHYTHMIA [None]
  - CARDIAC DISORDER [None]
  - FIBROSIS [None]
  - HEPATIC STEATOSIS [None]
  - ILL-DEFINED DISORDER [None]
  - LOSS OF CONSCIOUSNESS [None]
  - SUDDEN DEATH [None]
